FAERS Safety Report 6917550-6 (Version None)
Quarter: 2010Q3

REPORT INFORMATION
  Report Type: 
  Country: None (occurrence: None)
  Receive Date: 20100810
  Receipt Date: 20100730
  Transmission Date: 20110219
  Serious: Yes (Other)
  Sender: FDA-Public Use
  Company Number: US-JNJFOC-20100506246

PATIENT

DRUGS (7)
  1. PREZISTA [Suspect]
     Indication: HIV INFECTION
     Route: 065
  2. PREZISTA [Suspect]
     Route: 065
  3. TRUVADA [Suspect]
     Indication: HIV INFECTION
     Route: 065
  4. RITONAVIR [Concomitant]
     Indication: HIV INFECTION
  5. RITONAVIR [Concomitant]
  6. ISENTRESS [Concomitant]
     Indication: HIV INFECTION
  7. LIPITOR [Concomitant]

REACTIONS (1)
  - BLOOD CREATININE INCREASED [None]
